FAERS Safety Report 26108184 (Version 1)
Quarter: 2025Q4

REPORT INFORMATION
  Report Type: Spontaneous
  Country: US (occurrence: None)
  Receive Date: 20251201
  Receipt Date: 20251201
  Transmission Date: 20260117
  Serious: Yes (Disabling)
  Sender: FDA-CTU
  Company Number: None

PATIENT
  Age: 35 Year
  Sex: Female
  Weight: 87.3 kg

DRUGS (12)
  1. KESIMPTA [Suspect]
     Active Substance: OFATUMUMAB
     Indication: Multiple sclerosis relapse
     Dosage: OTHER QUANTITY : 1 INJECTION(S);?OTHER FREQUENCY : WEEKLY;?
     Route: 058
     Dates: start: 20250615, end: 20250908
  2. PREDNISONE [Concomitant]
     Active Substance: PREDNISONE
  3. ENSKYCE [Concomitant]
     Active Substance: DESOGESTREL\ETHINYL ESTRADIOL
  4. PREGABALIN [Concomitant]
     Active Substance: PREGABALIN
  5. FAMOTIDINE [Concomitant]
     Active Substance: FAMOTIDINE
  6. TYLENOL [Concomitant]
     Active Substance: ACETAMINOPHEN
  7. CETIRIZINE HYDROCHLORIDE [Concomitant]
     Active Substance: CETIRIZINE HYDROCHLORIDE
  8. CETIRIZINE HYDROCHLORIDE [Concomitant]
     Active Substance: CETIRIZINE HYDROCHLORIDE
  9. KETOROLAC [Concomitant]
     Active Substance: KETOROLAC TROMETHAMINE
  10. VITAMIN D3 [Concomitant]
     Active Substance: CHOLECALCIFEROL
  11. VITAMIN B1 [Concomitant]
     Active Substance: THIAMINE HYDROCHLORIDE
  12. INOSITOL [Concomitant]
     Active Substance: INOSITOL

REACTIONS (20)
  - Back pain [None]
  - Spinal pain [None]
  - Neck pain [None]
  - Muscle strain [None]
  - Cough [None]
  - Photophobia [None]
  - Tachycardia [None]
  - Gait disturbance [None]
  - Migraine [None]
  - Chest pain [None]
  - Asthenia [None]
  - Chills [None]
  - Tremor [None]
  - Rhinorrhoea [None]
  - Decreased appetite [None]
  - Myalgia [None]
  - Dizziness [None]
  - Urinary incontinence [None]
  - Pyrexia [None]
  - Hypoglycaemia [None]

NARRATIVE: CASE EVENT DATE: 20250616
